FAERS Safety Report 5782780-6 (Version None)
Quarter: 2008Q2

REPORT INFORMATION
  Report Type: 
  Country: None (occurrence: None)
  Receive Date: 20080624
  Receipt Date: 20080312
  Transmission Date: 20081010
  Serious: No
  Sender: FDA-Public Use
  Company Number: US-BAYER-200817159NA

PATIENT
  Age: 73 Year
  Sex: Female
  Weight: 53 kg

DRUGS (8)
  1. CLIMARA [Suspect]
     Indication: DRUG USE FOR UNKNOWN INDICATION
     Dosage: TOTAL DAILY DOSE: 0.05 MG  UNIT DOSE: 0.05 MG
     Route: 062
     Dates: start: 19860101, end: 20070101
  2. CLIMARA [Suspect]
     Dosage: TOTAL DAILY DOSE: 0.025 MG  UNIT DOSE: 0.05 MG
     Route: 062
  3. CLIMARA [Suspect]
     Dosage: TOTAL DAILY DOSE: 0.1 MG  UNIT DOSE: 0.1 MG
     Route: 062
     Dates: start: 20070101
  4. VITAMIN B [Concomitant]
  5. VITAMIN D [Concomitant]
  6. MAGNESIUM [Concomitant]
  7. CALCIUM [Concomitant]
  8. MULTI-VITAMIN [Concomitant]

REACTIONS (3)
  - EMERGENCY CARE [None]
  - HOT FLUSH [None]
  - PALPITATIONS [None]
